FAERS Safety Report 13803136 (Version 1)
Quarter: 2017Q3

REPORT INFORMATION
  Report Type: Spontaneous
  Country: US (occurrence: US)
  Receive Date: 20170727
  Receipt Date: 20170727
  Transmission Date: 20171127
  Serious: Yes (Life-Threatening)
  Sender: FDA-Public Use
  Company Number: None

PATIENT
  Age: 74 Year
  Sex: Male

DRUGS (1)
  1. VANCOMYCIN [Suspect]
     Active Substance: VANCOMYCIN
     Indication: OSTEOMYELITIS
     Dates: start: 20170314, end: 20170405

REACTIONS (3)
  - Anaphylactic reaction [None]
  - Hypotension [None]
  - Rash [None]

NARRATIVE: CASE EVENT DATE: 20170407
